FAERS Safety Report 10515800 (Version 1)
Quarter: 2014Q4

REPORT INFORMATION
  Report Type: Spontaneous
  Country: US (occurrence: US)
  Receive Date: 20141014
  Receipt Date: 20141014
  Transmission Date: 20150528
  Serious: No
  Sender: FDA-Public Use
  Company Number: US-PFIZER INC-2014277389

PATIENT
  Age: 62 Year
  Sex: Female

DRUGS (1)
  1. SUTENT [Suspect]
     Active Substance: SUNITINIB MALATE
     Dosage: 50 MG, CYCLIC (4 CAPS OF THE 12.5MG CAPS ONCE A DAY FOR 28 DAYS ON AND 14 DAYS OFF)
     Dates: start: 20140823

REACTIONS (4)
  - Diarrhoea [Unknown]
  - Blister [Unknown]
  - Erythema [Unknown]
  - Decubitus ulcer [Unknown]
